FAERS Safety Report 15851434 (Version 1)
Quarter: 2019Q1

REPORT INFORMATION
  Report Type: Other
  Country: US (occurrence: US)
  Receive Date: 20190122
  Receipt Date: 20190122
  Transmission Date: 20190417
  Serious: Yes (Death)
  Sender: FDA-Public Use
  Company Number: US-ACI HEALTHCARE LIMITED-2061538

PATIENT
  Age: 59 Year
  Sex: Female

DRUGS (6)
  1. PAROXETINE. [Suspect]
     Active Substance: PAROXETINE
     Route: 065
  2. TRAZODONE [Suspect]
     Active Substance: TRAZODONE HYDROCHLORIDE
     Route: 065
  3. M-CPP (META CHLOROPHENYLPIPERIZINE) [Suspect]
     Active Substance: META-CHLOROPHENYLPIPERAZINE
     Route: 065
  4. GABAPENTIN. [Suspect]
     Active Substance: GABAPENTIN
     Indication: PRODUCT USED FOR UNKNOWN INDICATION
     Route: 065
  5. BENZOYLECGONINE [Suspect]
     Active Substance: BENZOYLECGONINE
     Route: 065
  6. BUPROPION. [Suspect]
     Active Substance: BUPROPION
     Route: 065

REACTIONS (1)
  - Accidental poisoning [Fatal]
